FAERS Safety Report 8446229-7 (Version None)
Quarter: 2012Q2

REPORT INFORMATION
  Report Type: 
  Country: None (occurrence: None)
  Receive Date: 20120618
  Receipt Date: 20110518
  Transmission Date: 20120825
  Serious: Yes (Hospitalization, Other)
  Sender: FDA-Public Use
  Company Number: US-CELGENEUS-163-21880-11043408

PATIENT
  Sex: Female

DRUGS (15)
  1. REVLIMID [Suspect]
     Indication: MULTIPLE MYELOMA
     Dosage: 10 MILLIGRAM
     Route: 048
     Dates: start: 20060701
  2. ASPIRIN [Concomitant]
     Route: 065
  3. ZINC SULFATE [Concomitant]
     Route: 065
  4. PREDNISONE [Concomitant]
     Indication: POLYMYALGIA RHEUMATICA
     Dosage: 9 MILLIGRAM
     Route: 065
  5. BACTRIM DS [Concomitant]
     Indication: PROPHYLAXIS
     Dosage: 80-160 MG
     Route: 048
  6. REVLIMID [Suspect]
     Dosage: 10 MILLIGRAM
     Route: 048
     Dates: start: 20101101, end: 20110330
  7. SENOKOT [Concomitant]
     Route: 065
  8. LEVAQUIN [Concomitant]
     Route: 065
  9. ZITHROMAX [Concomitant]
     Route: 065
  10. ZOMETA [Concomitant]
     Route: 065
  11. ARIMIDEX [Concomitant]
     Indication: BREAST CANCER
     Route: 065
     Dates: start: 20080201
  12. VITAMIN B6 [Concomitant]
     Route: 065
  13. FOLIC ACID [Concomitant]
     Route: 065
  14. REVLIMID [Suspect]
     Dosage: 10 MILLIGRAM
     Route: 048
     Dates: start: 20110410
  15. ACYCLOVIR [Concomitant]
     Indication: PROPHYLAXIS
     Dosage: 400 MILLIGRAM
     Route: 048

REACTIONS (2)
  - WHITE BLOOD CELL COUNT DECREASED [None]
  - PNEUMONIA [None]
